FAERS Safety Report 8571879-7 (Version None)
Quarter: 2012Q3

REPORT INFORMATION
  Report Type: 
  Country: None (occurrence: None)
  Receive Date: 20120806
  Receipt Date: 20120801
  Transmission Date: 20120928
  Serious: No
  Sender: FDA-Public Use
  Company Number: US-PFIZER INC-2012187953

PATIENT
  Sex: Female

DRUGS (3)
  1. ZOLOFT [Suspect]
     Dosage: 50 MG, UNK
  2. LEXAPRO [Concomitant]
     Dosage: UNK
  3. ZOLOFT [Suspect]
     Dosage: 25 MG, UNK

REACTIONS (1)
  - BRADYCARDIA [None]
